FAERS Safety Report 8029115-6 (Version None)
Quarter: 2012Q1

REPORT INFORMATION
  Report Type: 
  Country: None (occurrence: None)
  Receive Date: 20120106
  Receipt Date: 20111226
  Transmission Date: 20120608
  Serious: Yes (Other)
  Sender: FDA-Public Use
  Company Number: BR-ELI_LILLY_AND_COMPANY-BR201112007172

PATIENT
  Sex: Female

DRUGS (13)
  1. SIMVASTATIN [Concomitant]
     Indication: BLOOD CHOLESTEROL
     Dosage: UNK, EACH EVENING
     Route: 065
  2. GABAPENTINA [Concomitant]
     Indication: PAIN IN EXTREMITY
     Dosage: UNK, EACH EVENING
     Route: 065
  3. HUMULIN N [Suspect]
     Indication: TYPE 2 DIABETES MELLITUS
     Dosage: UNK, UNKNOWN
     Route: 058
     Dates: start: 20111212
  4. HUMULIN N [Suspect]
     Dosage: 12 IU, EACH EVENING
     Route: 058
  5. FLUCONAZOLE [Concomitant]
     Indication: FUNGAL INFECTION
     Dosage: UNK, WEEKLY (1/W)
     Route: 065
  6. ATENOLOL [Concomitant]
     Indication: HYPERTENSION
     Dosage: UNK, EACH MORNING
     Route: 065
  7. METFFORMIN HYDROCHLORIDE [Concomitant]
     Indication: DIABETES MELLITUS
     Dosage: UNK, EVERY 8 HRS
     Route: 065
  8. ASPIRIN [Concomitant]
     Indication: BLOOD CHOLESTEROL
     Dosage: UNK, EACH MORNING
     Route: 065
  9. FUROSEMIDE [Concomitant]
     Indication: SWELLING
     Dosage: UNK, QOD
     Route: 065
  10. HUMULIN N [Suspect]
     Dosage: 24 IU, UNKNOWN
     Route: 058
     Dates: start: 20111212
  11. HUMULIN N [Suspect]
     Dosage: 18 IU, EACH MORNING
     Route: 058
  12. ENALAPRIL MALEATE [Concomitant]
     Indication: HYPERTENSION
     Dosage: UNK, EVERY 8 HRS
     Route: 065
  13. NORFLOXACINO [Concomitant]
     Indication: URINARY TRACT INFECTION
     Dosage: 400 MG, BID
     Route: 065

REACTIONS (5)
  - PERIPHERAL COLDNESS [None]
  - DIZZINESS [None]
  - HYPOGLYCAEMIA [None]
  - DEPRESSED LEVEL OF CONSCIOUSNESS [None]
  - SPEECH DISORDER [None]
